FAERS Safety Report 8512914-1 (Version None)
Quarter: 2012Q3

REPORT INFORMATION
  Report Type: 
  Country: None (occurrence: None)
  Receive Date: 20120705
  Receipt Date: 20120618
  Transmission Date: 20120928
  Serious: Yes (Other)
  Sender: FDA-Public Use
  Company Number: 2011US-44148

PATIENT
  Age: 16 Year
  Sex: Male

DRUGS (1)
  1. ISOTRETINOIN [Suspect]
     Indication: ACNE
     Dosage: 30MG/DAY, UNKNOWN 60MG/DAY, UNKNOWN

REACTIONS (3)
  - PYOGENIC GRANULOMA [None]
  - PARONYCHIA [None]
  - NO THERAPEUTIC RESPONSE [None]
